FAERS Safety Report 14552948 (Version 1)
Quarter: 2018Q1

REPORT INFORMATION
  Report Type: Spontaneous
  Country: US (occurrence: US)
  Receive Date: 20180220
  Receipt Date: 20180220
  Transmission Date: 20180509
  Serious: No
  Sender: FDA-Public Use
  Company Number: US-PFIZER INC-2018067159

PATIENT
  Age: 73 Year
  Sex: Male
  Weight: 117.9 kg

DRUGS (3)
  1. LYRICA [Suspect]
     Active Substance: PREGABALIN
     Dosage: TOOK 4 CAPSULES A DAY
  2. LYRICA [Suspect]
     Active Substance: PREGABALIN
     Dosage: 50 MG, UNK
  3. LYRICA [Suspect]
     Active Substance: PREGABALIN
     Indication: NEUROPATHY PERIPHERAL
     Dosage: 50 MG, 3X/DAY
     Route: 048

REACTIONS (5)
  - Cardiac disorder [Unknown]
  - Poor quality drug administered [Unknown]
  - Product quality issue [Unknown]
  - Intentional product use issue [Unknown]
  - Drug ineffective [Unknown]
